FAERS Safety Report 7813738-0 (Version None)
Quarter: 2011Q4

REPORT INFORMATION
  Report Type: 
  Country: None (occurrence: None)
  Receive Date: 20111014
  Receipt Date: 20110930
  Transmission Date: 20120403
  Serious: Yes (Hospitalization, Other)
  Sender: FDA-Public Use
  Company Number: US-BAYER-2011-082362

PATIENT
  Age: 34 Year
  Sex: Female
  Weight: 104.31 kg

DRUGS (10)
  1. GUAIFENESIN [Concomitant]
     Dosage: UNK
     Route: 048
     Dates: start: 20030915
  2. IBUPROFEN [Concomitant]
     Route: 048
  3. YASMIN [Suspect]
     Indication: CONTRACEPTION
     Dosage: UNK
     Route: 048
     Dates: start: 20021124, end: 20031016
  4. ADVAIR DISKUS 100/50 [Concomitant]
     Route: 045
  5. LEVAQUIN [Concomitant]
     Dosage: 500 MG, UNK
     Route: 048
     Dates: start: 20030706
  6. BIAXIN [Concomitant]
  7. LEVAQUIN [Concomitant]
     Dosage: UNK
     Dates: start: 20030915
  8. FLEXERIL [Concomitant]
     Indication: MYALGIA
     Dosage: 5 MG, UNK
     Route: 048
  9. ALBUTEROL [Concomitant]
     Route: 045
  10. DIFLUCAN [Concomitant]
     Dosage: 150 MG, UNK
     Route: 048
     Dates: start: 20030715

REACTIONS (8)
  - DEPRESSION [None]
  - DEEP VEIN THROMBOSIS [None]
  - PAIN [None]
  - BRONCHITIS [None]
  - ANXIETY [None]
  - OEDEMA PERIPHERAL [None]
  - INJURY [None]
  - PULMONARY EMBOLISM [None]
